FAERS Safety Report 25715125 (Version 1)
Quarter: 2025Q3

REPORT INFORMATION
  Report Type: Spontaneous
  Country: GB (occurrence: GB)
  Receive Date: 20250822
  Receipt Date: 20250822
  Transmission Date: 20251021
  Serious: Yes (Other)
  Sender: RANBAXY
  Company Number: GB-SUN PHARMACEUTICAL INDUSTRIES LTD-2025RR-523829

PATIENT
  Sex: Male

DRUGS (1)
  1. LENALIDOMIDE [Suspect]
     Active Substance: LENALIDOMIDE
     Indication: Plasma cell myeloma
     Route: 065

REACTIONS (1)
  - Neuropathy peripheral [Unknown]
